FAERS Safety Report 8605908-9 (Version None)
Quarter: 2012Q3

REPORT INFORMATION
  Report Type: 
  Country: None (occurrence: None)
  Receive Date: 20120809
  Receipt Date: 20120809
  Transmission Date: 20120928
  Serious: Yes (Other)
  Sender: FDA-Public Use
  Company Number: None

PATIENT
  Age: 57 Year
  Sex: Male
  Weight: 65.9 kg

DRUGS (1)
  1. FUROSEMIDE [Suspect]
     Dosage: 20 MG PRN IV
     Route: 042
     Dates: start: 20120420, end: 20120513

REACTIONS (2)
  - RASH MORBILLIFORM [None]
  - DRUG RASH WITH EOSINOPHILIA AND SYSTEMIC SYMPTOMS [None]
